FAERS Safety Report 10504072 (Version 1)
Quarter: 2014Q4

REPORT INFORMATION
  Report Type: Spontaneous
  Country: US (occurrence: US)
  Receive Date: 20141008
  Receipt Date: 20141008
  Transmission Date: 20150528
  Serious: No
  Sender: FDA-Public Use
  Company Number: US-BEH-2013038253

PATIENT
  Sex: Male
  Weight: 85 kg

DRUGS (11)
  1. PRIVIGEN [Suspect]
     Active Substance: HUMAN IMMUNOGLOBULIN G
     Indication: IMMUNODEFICIENCY COMMON VARIABLE
     Route: 042
  2. DIOVAN [Concomitant]
     Active Substance: VALSARTAN
  3. SODIUM CHLORIDE. [Concomitant]
     Active Substance: SODIUM CHLORIDE
  4. EPIPEN [Concomitant]
     Active Substance: EPINEPHRINE
  5. CLINDAMYCIN [Concomitant]
     Active Substance: CLINDAMYCIN\CLINDAMYCIN PHOSPHATE
  6. DEXTROSE 5% [Concomitant]
     Active Substance: DEXTROSE
  7. HEPARIN [Concomitant]
     Active Substance: HEPARIN SODIUM
  8. NORMAL SALINE [Concomitant]
     Active Substance: SODIUM CHLORIDE
  9. ACETAMINOPHEN. [Concomitant]
     Active Substance: ACETAMINOPHEN
  10. CLARITHROMYCIN. [Concomitant]
     Active Substance: CLARITHROMYCIN
  11. DIPHENHYDRAMINE [Concomitant]
     Active Substance: DIPHENHYDRAMINE

REACTIONS (1)
  - Sinusitis [Unknown]
